FAERS Safety Report 17505305 (Version 2)
Quarter: 2020Q1

REPORT INFORMATION
  Report Type: Report from Study
  Country: RU (occurrence: RU)
  Receive Date: 20200305
  Receipt Date: 20200323
  Transmission Date: 20200409
  Serious: Yes (Other)
  Sender: FDA-Public Use
  Company Number: RU-SHIRE-RU202008438

PATIENT

DRUGS (4)
  1. KREON [Concomitant]
     Active Substance: PANCRELIPASE
     Indication: PRODUCT USED FOR UNKNOWN INDICATION
  2. CHOFITOL [Concomitant]
     Indication: PRODUCT USED FOR UNKNOWN INDICATION
  3. ELAPRASE [Suspect]
     Active Substance: IDURSULFASE
     Dosage: 5 DOSAGE FORM, 1X/WEEK
     Route: 042
  4. ELAPRASE [Suspect]
     Active Substance: IDURSULFASE
     Indication: PRODUCT USED FOR UNKNOWN INDICATION
     Dosage: 2 DOSAGE FORM, 1X/WEEK
     Route: 042
     Dates: start: 20100309

REACTIONS (3)
  - Depressive symptom [Not Recovered/Not Resolved]
  - Psychotic symptom [Not Recovered/Not Resolved]
  - Intentional product misuse [Unknown]
